FAERS Safety Report 7596906-5 (Version None)
Quarter: 2011Q3

REPORT INFORMATION
  Report Type: 
  Country: None (occurrence: None)
  Receive Date: 20110708
  Receipt Date: 20110706
  Transmission Date: 20111222
  Serious: Yes (Death, Life-Threatening, Hospitalization)
  Sender: FDA-Public Use
  Company Number: FR-PFIZER INC-2011150664

PATIENT
  Age: 45 Year
  Sex: Female

DRUGS (14)
  1. LASIX [Suspect]
     Dosage: 1 G, 1X/DAY
     Dates: start: 20110510
  2. TRACLEER [Concomitant]
     Dosage: 125 MG
  3. PANTOPRAZOLE [Concomitant]
     Dosage: 40 MG
  4. ALDACTONE [Suspect]
     Dosage: 150 MG IN THE MORNING AND 50 MG IN THE EVENING
     Route: 048
     Dates: end: 20110505
  5. ALPRAZOLAM [Suspect]
     Dosage: 0.5 MG, 2X/DAY
     Route: 048
     Dates: end: 20110505
  6. POTASSIUM CHLORIDE [Suspect]
     Dosage: 18 CAPSULES A DAY
     Route: 048
     Dates: end: 20110505
  7. CORDARONE [Concomitant]
     Dosage: 200 MG
  8. LEVOTHYROXINE SODIUM [Concomitant]
     Dosage: 50 A?G
  9. TADALAFIL [Concomitant]
     Dosage: 20 MG
  10. LASIX [Suspect]
     Dosage: 1 G, 2X/DAY
     Route: 048
     Dates: end: 20110505
  11. ESIDRIX [Suspect]
     Dosage: 25 MG, 1X/DAY
     Route: 048
     Dates: end: 20110505
  12. PROZAC [Concomitant]
  13. PREVISCAN [Concomitant]
     Dosage: 20 MG
  14. VENTAVIS [Concomitant]
     Dosage: 10 A?G/ML

REACTIONS (4)
  - DEHYDRATION [None]
  - HYPERKALAEMIA [None]
  - RENAL FAILURE ACUTE [None]
  - CARDIAC FAILURE [None]
